FAERS Safety Report 8517816-2 (Version None)
Quarter: 2012Q3

REPORT INFORMATION
  Report Type: 
  Country: None (occurrence: None)
  Receive Date: 20120712
  Receipt Date: 20120712
  Transmission Date: 20120928
  Serious: Yes (Life-Threatening)
  Sender: FDA-Public Use
  Company Number: None

PATIENT
  Age: 78 Year
  Sex: Male
  Weight: 79.5 kg

DRUGS (18)
  1. LISINOPRIL [Concomitant]
  2. PACERONE [Concomitant]
  3. CYANOCOBALAMIN [Concomitant]
  4. ASCORBIC ACID [Concomitant]
  5. DICLOFENAC: [Concomitant]
  6. METHYLIN [Concomitant]
  7. EXELON [Concomitant]
  8. ZOLPIDEM [Concomitant]
  9. NAMENDA [Concomitant]
  10. ZYRTEC [Concomitant]
  11. DIVALPROEX SODIUM [Concomitant]
  12. MELATONIN: [Concomitant]
  13. MULTI-VITAMIN [Concomitant]
  14. WARFARIN SODIUM [Suspect]
     Indication: CEREBROVASCULAR ACCIDENT PROPHYLAXIS
     Dosage: 5MG DAILY PO
     Route: 048
  15. WARFARIN SODIUM [Suspect]
     Indication: ATRIAL FIBRILLATION
     Dosage: 5MG DAILY PO
     Route: 048
  16. XANAX [Concomitant]
  17. ATENOLOL [Concomitant]
  18. DIGOXIN [Concomitant]

REACTIONS (3)
  - MENTAL STATUS CHANGES [None]
  - HEAD INJURY [None]
  - FALL [None]
